FAERS Safety Report 19906931 (Version 2)
Quarter: 2022Q1

REPORT INFORMATION
  Report Type: Report from Study
  Country: DO (occurrence: DO)
  Receive Date: 20210930
  Receipt Date: 20220226
  Transmission Date: 20220423
  Serious: Yes (Hospitalization, Other)
  Sender: FDA-Public Use
  Company Number: DO-NOVARTISPH-NVSC2021DO221505

PATIENT
  Age: 73 Year
  Sex: Female

DRUGS (1)
  1. GILENYA [Suspect]
     Active Substance: FINGOLIMOD HYDROCHLORIDE
     Indication: Relapsing-remitting multiple sclerosis
     Dosage: 0.5 MG, QD
     Route: 048
     Dates: start: 20190130

REACTIONS (9)
  - Cerebellar syndrome [Unknown]
  - Multiple sclerosis relapse [Recovering/Resolving]
  - Eye contusion [Unknown]
  - Fall [Unknown]
  - Face injury [Unknown]
  - Head injury [Unknown]
  - Balance disorder [Unknown]
  - Fatigue [Unknown]
  - Gait disturbance [Unknown]

NARRATIVE: CASE EVENT DATE: 20210922
